FAERS Safety Report 4641699-4 (Version None)
Quarter: 2005Q2

REPORT INFORMATION
  Report Type: 
  Country: None (occurrence: None)
  Receive Date: 20050421
  Receipt Date: 20050407
  Transmission Date: 20051028
  Serious: Yes (Hospitalization)
  Sender: FDA-Public Use
  Company Number: ABNDF-05-0196

PATIENT
  Age: 35 Year
  Sex: Female
  Weight: 64.4108 kg

DRUGS (11)
  1. ABRAXANE [Suspect]
     Indication: BREAST CANCER METASTATIC
     Dosage: 1 DOSE 440 MG (260 MG/M2, EVERY 3 WEEKS) INTRAVENOUS DRIP
     Route: 041
     Dates: start: 20050307, end: 20050307
  2. MULTIVITAMIN [Concomitant]
  3. LORTAB [Concomitant]
  4. ADVIL [Concomitant]
  5. CALCIUM + VITAMIN D (CALCIUM WITH VITAMIN D) [Concomitant]
  6. VITAMIN B6 [Concomitant]
  7. COMPAZINE [Concomitant]
  8. PRILOSEC [Concomitant]
  9. ALOXI (ANTIEMETICS AND ANTINAUSEANTS) [Concomitant]
  10. PROCRIT [Concomitant]
  11. NEUPOGEN [Concomitant]

REACTIONS (6)
  - ABDOMINAL DISTENSION [None]
  - ARTHRALGIA [None]
  - ASTHENIA [None]
  - CONSTIPATION [None]
  - PAIN [None]
  - PYREXIA [None]
